FAERS Safety Report 22291168 (Version 1)
Quarter: 2023Q2

REPORT INFORMATION
  Report Type: Report from Study
  Country: US (occurrence: US)
  Receive Date: 20230506
  Receipt Date: 20230506
  Transmission Date: 20230721
  Serious: Yes (Other)
  Sender: FDA-Public Use
  Company Number: US-002147023-NVSC2023US101764

PATIENT
  Sex: Male

DRUGS (4)
  1. OXALIPLATIN [Suspect]
     Active Substance: OXALIPLATIN
     Indication: Pancreatic carcinoma metastatic
     Dosage: UNK, OTHER, EVERY TWO WEEKS
     Route: 065
     Dates: start: 202301, end: 202304
  2. LEUCOVORIN [Suspect]
     Active Substance: LEUCOVORIN
     Indication: Pancreatic carcinoma metastatic
     Dosage: UNK, OTHER, EVERY TWO WEEKS
     Route: 065
  3. FLUOROURACIL [Suspect]
     Active Substance: FLUOROURACIL
     Indication: Pancreatic carcinoma metastatic
     Dosage: UNK, OTHER, EVERY TWO WEEKS
     Route: 065
     Dates: start: 202301, end: 202304
  4. IRINOTECAN [Suspect]
     Active Substance: IRINOTECAN
     Indication: Pancreatic carcinoma metastatic
     Dosage: UNK, OTHER, EVERY TWO WEEKS
     Route: 065
     Dates: start: 202301, end: 202304

REACTIONS (3)
  - Pancreatic carcinoma metastatic [Unknown]
  - Malignant neoplasm progression [Unknown]
  - Product use in unapproved indication [Unknown]
